FAERS Safety Report 12043331 (Version 1)
Quarter: 2016Q1

REPORT INFORMATION
  Report Type: Report from Study
  Country: US (occurrence: US)
  Receive Date: 20160208
  Receipt Date: 20160208
  Transmission Date: 20160526
  Serious: No
  Sender: FDA-Public Use
  Company Number: US-ABBVIE-15P-163-1404947-00

PATIENT
  Age: 60 Year
  Sex: Female

DRUGS (4)
  1. HUMIRA [Suspect]
     Active Substance: ADALIMUMAB
     Indication: CROHN^S DISEASE
     Dosage: DAY1
     Route: 058
     Dates: start: 20141014, end: 20141014
  2. HUMIRA [Suspect]
     Active Substance: ADALIMUMAB
     Dosage: DAY 15
     Route: 058
  3. HUMIRA [Suspect]
     Active Substance: ADALIMUMAB
     Route: 058
  4. MERCAPTOPURINE. [Concomitant]
     Active Substance: MERCAPTOPURINE
     Indication: PRODUCT USED FOR UNKNOWN INDICATION
     Route: 065

REACTIONS (8)
  - Weight increased [Not Recovered/Not Resolved]
  - Injection site erythema [Unknown]
  - Inappropriate schedule of drug administration [Recovered/Resolved]
  - Injection site pain [Unknown]
  - Anxiety [Recovering/Resolving]
  - Injection site swelling [Unknown]
  - Stress [Recovering/Resolving]
  - Injection site haemorrhage [Unknown]

NARRATIVE: CASE EVENT DATE: 20141014
